FAERS Safety Report 14764561 (Version 2)
Quarter: 2018Q2

REPORT INFORMATION
  Report Type: Spontaneous
  Country: DE (occurrence: DE)
  Receive Date: 20180416
  Receipt Date: 20180525
  Transmission Date: 20180711
  Serious: Yes (Other)
  Sender: FDA-Public Use
  Company Number: DE-UCBSA-2018015540

PATIENT
  Age: 77 Year
  Sex: Female

DRUGS (4)
  1. LEVETIRACETAM UCB [Suspect]
     Active Substance: LEVETIRACETAM
     Indication: EPILEPSY
     Dosage: 1000 MG, 2X/DAY (BID)
  2. LEVETIRACETAM UCB [Suspect]
     Active Substance: LEVETIRACETAM
     Dosage: 1000-0-1500MG-0, 2X/DAY (BID)
  3. CARBAMAZEPINE. [Concomitant]
     Active Substance: CARBAMAZEPINE
     Indication: EPILEPSY
     Dosage: 400 MG, ONCE DAILY (QD) (0-0-400MG-0)
  4. VALSARTAN. [Concomitant]
     Active Substance: VALSARTAN
     Indication: BLOOD PRESSURE FLUCTUATION
     Dosage: 40 MG, 2X/DAY (BID)

REACTIONS (4)
  - Blood pressure fluctuation [Recovered/Resolved]
  - Drug ineffective [Unknown]
  - Seizure [Unknown]
  - Intentional product misuse [Unknown]
